FAERS Safety Report 10026116 (Version 1)
Quarter: 2014Q1

REPORT INFORMATION
  Report Type: Spontaneous
  Country: NL (occurrence: NL)
  Receive Date: 20140320
  Receipt Date: 20140320
  Transmission Date: 20141002
  Serious: Yes (Hospitalization)
  Sender: FDA-Public Use
  Company Number: NL-TEVA-467812ISR

PATIENT
  Age: 75 Year
  Sex: Female

DRUGS (14)
  1. METHOTREXAAT TABLET 2,5MG [Suspect]
     Indication: RHEUMATOID ARTHRITIS
     Dosage: ONCE A WEEK 5 TABLETS
     Route: 048
     Dates: start: 200405
  2. ACENOCOUMAROL TABLET 1MG [Concomitant]
     Dosage: ACCORDING PRESCRIPTION THROMBOSIS SERVICE
     Route: 048
     Dates: start: 200508
  3. VERAPAMIL TABLET MGA 120MG [Concomitant]
     Dosage: DOSE NOT FILLED IN
     Route: 048
     Dates: start: 200508
  4. AMIODARON TABLET 200MG [Concomitant]
     Dosage: DOSE NOT FILLED IN
     Route: 048
     Dates: start: 200508, end: 201312
  5. CANDESARTAN TABLET  4MG [Concomitant]
     Dosage: DOSE NOT FILLED IN
     Route: 048
  6. FUROSEMIDE [Concomitant]
     Dosage: DOSE NOT FILLED IN
     Route: 048
  7. FERROFUMARAAT [Concomitant]
     Dosage: DOSE NOT FILLED IN
     Route: 048
  8. ARANESP   10 INJVLST  25MCG/ML WWSP 0,4ML [Concomitant]
     Dosage: .0476 DOSAGE FORMS DAILY; EVERY 3 WEEKS
     Route: 065
  9. PANTOPRAZOL TABLET MSR 20MG [Concomitant]
     Dosage: DOSE NOT FILLED IN,GASTRO-RESISTANT TABLET
     Route: 048
  10. PRAVASTATINE TABLET 10MG [Concomitant]
     Dosage: DOSE NOT FILLED IN
     Route: 048
  11. CALCI CHEW KAUWTABLET  500MG [Concomitant]
     Dosage: DOSE NOT FILLED IN
     Route: 048
  12. LANOXIN PG TABLET 0,0625MG [Concomitant]
     Route: 048
  13. VENTOLIN  100 AER CFKVR 100MCG/DO SPBS 200DO+INHAL [Concomitant]
     Route: 055
  14. SERETIDE AEROSOL 25/250MCG/DO CFKVR SPBS 120DO+INH [Concomitant]
     Route: 055

REACTIONS (3)
  - Pneumonia [Recovered/Resolved]
  - Bronchitis [Recovered/Resolved]
  - Immunosuppression [Recovered/Resolved]
